FAERS Safety Report 8291992-1 (Version None)
Quarter: 2012Q2

REPORT INFORMATION
  Report Type: 
  Country: None (occurrence: None)
  Receive Date: 20120417
  Receipt Date: 20120416
  Transmission Date: 20120825
  Serious: Yes (Death, Other)
  Sender: FDA-Public Use
  Company Number: NL-ROCHE-1017916

PATIENT
  Sex: Male
  Weight: 80 kg

DRUGS (13)
  1. MYCOPHENOLATE MOFETIL (CELLCEPT) [Suspect]
     Indication: KIDNEY TRANSPLANT REJECTION
     Dates: start: 20101005, end: 20101115
  2. MYCOPHENOLATE MOFETIL (CELLCEPT) [Suspect]
     Dates: start: 20110217, end: 20111207
  3. SIROLIMUS [Suspect]
     Indication: KIDNEY TRANSPLANT REJECTION
     Dosage: 1 DOSE FORM, VARIABLE THROUGH LEVEL 5-10 UG/L
     Dates: start: 20101201, end: 20111101
  4. PREDNISONE TAB [Suspect]
     Indication: KIDNEY TRANSPLANT REJECTION
     Dates: start: 20101004, end: 20111101
  5. TACROLIMUS [Suspect]
     Indication: KIDNEY TRANSPLANT REJECTION
     Dosage: TIMES PER 750000 MG
     Route: 048
     Dates: start: 20101005, end: 20101201
  6. CALCIUM CARBONATE [Concomitant]
     Dates: start: 20101022
  7. NIFEDIPINE [Concomitant]
     Dates: start: 20110306
  8. MABTHERA [Suspect]
     Indication: KIDNEY TRANSPLANT REJECTION
     Route: 042
  9. MYCOPHENOLATE MOFETIL (CELLCEPT) [Suspect]
     Dates: start: 20110118, end: 20110204
  10. RANITIDINE HCL [Concomitant]
     Dates: start: 20101130
  11. POSACONAZOLE [Concomitant]
     Dates: start: 20110421
  12. METOPROLOL TARTRATE [Concomitant]
     Dates: start: 20080101
  13. ALFACALCIDOL [Concomitant]
     Dates: start: 20101030

REACTIONS (1)
  - PROGRESSIVE MULTIFOCAL LEUKOENCEPHALOPATHY [None]
